FAERS Safety Report 14573514 (Version 2)
Quarter: 2018Q1

REPORT INFORMATION
  Report Type: Spontaneous
  Country: IT (occurrence: IT)
  Receive Date: 20180226
  Receipt Date: 20180312
  Transmission Date: 20180509
  Serious: Yes (Other)
  Sender: FDA-Public Use
  Company Number: IT-TEVA-2018-IT-861110

PATIENT
  Age: 39 Year
  Sex: Male

DRUGS (4)
  1. CISPLATIN. [Suspect]
     Active Substance: CISPLATIN
     Indication: PAPILLOMA VIRAL INFECTION
     Dosage: 80 MG/M2 OF BODY SURFACE AREA ON DAY 1, EVERY THREE WEEKS
     Route: 065
  2. DOCETAXEL. [Suspect]
     Active Substance: DOCETAXEL
     Indication: OROPHARYNGEAL SQUAMOUS CELL CARCINOMA
     Dosage: 80 MG/M2 ON DAY 1, EVERY THREE WEEKS
     Route: 065
  3. DOCETAXEL. [Suspect]
     Active Substance: DOCETAXEL
     Indication: PAPILLOMA VIRAL INFECTION
  4. CISPLATIN. [Suspect]
     Active Substance: CISPLATIN
     Indication: OROPHARYNGEAL SQUAMOUS CELL CARCINOMA
     Dosage: 80 MG/M2 ON DAY 1, EVERY THREE WEEKS
     Route: 065

REACTIONS (5)
  - Alopecia [Unknown]
  - Nausea [Recovered/Resolved]
  - Dysphagia [Recovered/Resolved]
  - Erythema [Recovered/Resolved]
  - Neutropenia [Unknown]
